FAERS Safety Report 5302391-6 (Version None)
Quarter: 2007Q2

REPORT INFORMATION
  Report Type: 
  Country: None (occurrence: None)
  Receive Date: 20070413
  Receipt Date: 20070329
  Transmission Date: 20071010
  Serious: Yes (Other)
  Sender: FDA-Public Use
  Company Number: SPV1-2007-00742

PATIENT
  Sex: Female

DRUGS (2)
  1. PENTASA [Suspect]
     Dates: start: 20070101
  2. ANTI-FUNGAL AGENT [Suspect]
     Dosage: ORAL
     Route: 048

REACTIONS (3)
  - ALANINE AMINOTRANSFERASE INCREASED [None]
  - HEPATIC STEATOSIS [None]
  - LIVER FUNCTION TEST ABNORMAL [None]
